FAERS Safety Report 4306336-7 (Version None)
Quarter: 2004Q1

REPORT INFORMATION
  Report Type: 
  Country: None (occurrence: None)
  Receive Date: 20040225
  Receipt Date: 20030506
  Transmission Date: 20041129
  Serious: No
  Sender: FDA-Public Use
  Company Number: US-BRISTOL-MYERS SQUIBB COMPANY-12293742

PATIENT
  Age: 69 Year
  Sex: Male
  Weight: 68 kg

DRUGS (2)
  1. EXCEDRIN ES TABS [Suspect]
     Indication: TENSION HEADACHE
     Dosage: 2 - 4 TABLETS DAILY
     Route: 048
  2. VALIUM [Concomitant]
     Indication: TENSION HEADACHE

REACTIONS (1)
  - DRUG INEFFECTIVE [None]
